FAERS Safety Report 8875980 (Version 2)
Quarter: 2012Q4

REPORT INFORMATION
  Report Type: 
  Country: DK (occurrence: IT)
  Receive Date: 20121023
  Receipt Date: 20121206
  Transmission Date: 20130627
  Serious: Yes (Death, Hospitalization)
  Sender: FDA-Public Use
  Company Number: IT-FRI-1000014857

PATIENT
  Age: 75 Year
  Sex: Male

DRUGS (4)
  1. ESCITALOPRAM [Suspect]
     Indication: DEPRESSION
     Dosage: 10 mg
     Route: 048
     Dates: end: 20100622
  2. RIVASTIGMINE [Suspect]
     Indication: DEMENTIA ALZHEIMER^S TYPE
     Dosage: 3 mg
     Route: 048
     Dates: start: 200903, end: 20100622
  3. LIDOCAINE [Concomitant]
     Route: 061
     Dates: start: 20100622, end: 20100622
  4. CORTISONE [Concomitant]
     Route: 061
     Dates: start: 20100622, end: 20100622

REACTIONS (3)
  - Torsade de pointes [Fatal]
  - Electrocardiogram QT prolonged [Fatal]
  - Pneumonia [Fatal]
